FAERS Safety Report 6475384-3 (Version None)
Quarter: 2009Q4

REPORT INFORMATION
  Report Type: 
  Country: None (occurrence: None)
  Receive Date: 20091204
  Receipt Date: 20091130
  Transmission Date: 20100525
  Serious: Yes (Death, Hospitalization)
  Sender: FDA-Public Use
  Company Number: AU-JNJFOC-20080501323

PATIENT
  Sex: Male

DRUGS (1)
  1. REMINYL [Suspect]
     Indication: DEMENTIA
     Route: 048

REACTIONS (6)
  - ARTERIOSCLEROSIS CORONARY ARTERY [None]
  - FALL [None]
  - MULTIPLE FRACTURES [None]
  - MYOCARDIAL ISCHAEMIA [None]
  - RESPIRATORY FAILURE [None]
  - TUBERCULOSIS [None]
